FAERS Safety Report 4795732-X (Version None)
Quarter: 2005Q3

REPORT INFORMATION
  Report Type: 
  Country: None (occurrence: None)
  Receive Date: 20050916
  Receipt Date: 20050713
  Transmission Date: 20060218
  Serious: Yes (Other)
  Sender: FDA-Public Use
  Company Number: US-JNJFOC-20050703274

PATIENT
  Age: 47 Year
  Sex: Female

DRUGS (1)
  1. TOPAMAX [Suspect]
     Indication: MIGRAINE
     Dosage: 50 MG

REACTIONS (11)
  - ABNORMAL DREAMS [None]
  - AGITATION [None]
  - ARTHRALGIA [None]
  - CONFUSIONAL STATE [None]
  - ENURESIS [None]
  - FATIGUE [None]
  - IRRITABILITY [None]
  - MEMORY IMPAIRMENT [None]
  - MUSCLE SPASMS [None]
  - PAIN [None]
  - SOMNOLENCE [None]
